FAERS Safety Report 5425942-X (Version None)
Quarter: 2007Q3

REPORT INFORMATION
  Report Type: 
  Country: None (occurrence: None)
  Receive Date: 20070827
  Receipt Date: 20070823
  Transmission Date: 20080115
  Serious: Yes (Death)
  Sender: FDA-Public Use
  Company Number: IT-BAYER-200714884GDS

PATIENT
  Age: 31 Year
  Sex: Female

DRUGS (1)
  1. LIDOCAINE [Suspect]
     Indication: COMPLETED SUICIDE
     Route: 048

REACTIONS (2)
  - CARDIAC DEATH [None]
  - VENTRICULAR FIBRILLATION [None]
